FAERS Safety Report 23884194 (Version 1)
Quarter: 2024Q2

REPORT INFORMATION
  Report Type: Report from Study
  Country: ES (occurrence: ES)
  Receive Date: 20240522
  Receipt Date: 20240522
  Transmission Date: 20240716
  Serious: Yes (Other)
  Sender: FDA-Public Use
  Company Number: ES-BAYER-2024A069003

PATIENT
  Age: 75 Year
  Sex: Male

DRUGS (1)
  1. EYLEA [Suspect]
     Active Substance: AFLIBERCEPT
     Indication: Macular oedema
     Dosage: 4 MG (IT IS THE DOSE THAT THE DOCTOR CONSIDERED TO BE CURRENTLY MARKETED IN SPAIN), SOLUTION FOR INJ
     Dates: end: 2023

REACTIONS (1)
  - Macular hole [Unknown]
